FAERS Safety Report 11806412 (Version 1)
Quarter: 2015Q4

REPORT INFORMATION
  Report Type: Spontaneous
  Country: US (occurrence: US)
  Receive Date: 20151207
  Receipt Date: 20151207
  Transmission Date: 20160305
  Serious: No
  Sender: FDA-Public Use
  Company Number: US-REGENERON PHARMACEUTICALS, INC.-2015-13010

PATIENT

DRUGS (2)
  1. EYLEA [Suspect]
     Active Substance: AFLIBERCEPT
     Dosage: , VARIES FROM MONTHLY TO Q 8 WEEKS TO Q 4 WEEKS TO Q 6 WEEKSUNK
     Dates: start: 20151013, end: 20151013
  2. EYLEA [Suspect]
     Active Substance: AFLIBERCEPT
     Indication: NEOVASCULAR AGE-RELATED MACULAR DEGENERATION
     Dosage: UNK, VARIES FROM MONTHLY TO Q 8 WEEKS TO Q 4 WEEKS TO Q 6 WEEKS
     Dates: start: 201307

REACTIONS (4)
  - Eye pain [Unknown]
  - Drug ineffective [Unknown]
  - Visual impairment [Unknown]
  - Superficial injury of eye [Unknown]

NARRATIVE: CASE EVENT DATE: 20151014
